FAERS Safety Report 6176557-X (Version None)
Quarter: 2009Q2

REPORT INFORMATION
  Report Type: 
  Country: None (occurrence: None)
  Receive Date: 20090501
  Receipt Date: 20090424
  Transmission Date: 20091009
  Serious: Yes (Hospitalization)
  Sender: FDA-Public Use
  Company Number: US-ABBOTT-08P-163-0481863-00

PATIENT
  Sex: Female

DRUGS (3)
  1. LUPRON DEPOT [Suspect]
     Indication: OVARIAN CYST
     Route: 030
     Dates: start: 20080724, end: 20080724
  2. LUPRON DEPOT [Suspect]
     Indication: PAIN
  3. LEVOTHROID [Concomitant]
     Indication: THYROID DISORDER
     Route: 048

REACTIONS (4)
  - ACTIVITIES OF DAILY LIVING IMPAIRED [None]
  - HEADACHE [None]
  - HEMIPARESIS [None]
  - VISION BLURRED [None]
